FAERS Safety Report 24831688 (Version 1)
Quarter: 2025Q1

REPORT INFORMATION
  Report Type: Spontaneous
  Country: US (occurrence: US)
  Receive Date: 20250110
  Receipt Date: 20250110
  Transmission Date: 20250408
  Serious: No
  Sender: BAYER HEALTHCARE PHARMACEUTICALS INC.
  Company Number: US-BAYER-2025A003973

PATIENT
  Sex: Female

DRUGS (1)
  1. KYLEENA [Suspect]
     Active Substance: LEVONORGESTREL
     Dosage: 17.5?G/DAY
     Route: 015

REACTIONS (3)
  - Genital haemorrhage [Not Recovered/Not Resolved]
  - Vaginal haemorrhage [Not Recovered/Not Resolved]
  - Device dislocation [None]
